FAERS Safety Report 7774433-X (Version None)
Quarter: 2011Q3

REPORT INFORMATION
  Report Type: 
  Country: None (occurrence: None)
  Receive Date: 20110923
  Receipt Date: 20110913
  Transmission Date: 20111222
  Serious: Yes (Other)
  Sender: FDA-Public Use
  Company Number: ZA-JNJFOC-20110906261

PATIENT
  Sex: Female
  Weight: 75 kg

DRUGS (1)
  1. REVELLEX [Suspect]
     Indication: CROHN'S DISEASE
     Route: 042
     Dates: start: 20110101

REACTIONS (2)
  - IMPAIRED HEALING [None]
  - HERNIA [None]
